FAERS Safety Report 7230331-1 (Version None)
Quarter: 2011Q1

REPORT INFORMATION
  Report Type: 
  Country: None (occurrence: None)
  Receive Date: 20110118
  Receipt Date: 20110113
  Transmission Date: 20110831
  Serious: No
  Sender: FDA-Public Use
  Company Number: US-PFIZER INC-2011009315

PATIENT
  Sex: Female
  Weight: 68.03 kg

DRUGS (3)
  1. LIPITOR [Suspect]
     Indication: CARDIAC DISORDER
  2. LIPITOR [Suspect]
     Indication: BLOOD CHOLESTEROL INCREASED
     Dosage: UNK
     Route: 048
     Dates: start: 19990101, end: 19990101
  3. FOLIC ACID [Concomitant]
     Dosage: UNK

REACTIONS (1)
  - MUSCULAR WEAKNESS [None]
